FAERS Safety Report 9261334 (Version 1)
Quarter: 2013Q2

REPORT INFORMATION
  Report Type: Spontaneous
  Country: FR (occurrence: FR)
  Receive Date: 20130429
  Receipt Date: 20130429
  Transmission Date: 20140414
  Serious: Yes (Life-Threatening, Hospitalization)
  Sender: FDA-Public Use
  Company Number: FR-GLAXOSMITHKLINE-B0886466A

PATIENT
  Age: 60 Year
  Sex: Female

DRUGS (6)
  1. DEROXAT [Suspect]
     Indication: PRODUCT USED FOR UNKNOWN INDICATION
     Dosage: 10MG PER DAY
     Route: 048
  2. RIVOTRIL [Suspect]
     Indication: PRODUCT USED FOR UNKNOWN INDICATION
     Dosage: .3MG PER DAY
     Route: 048
     Dates: start: 20130321, end: 20130322
  3. DOMPERIDONE [Suspect]
     Indication: PRODUCT USED FOR UNKNOWN INDICATION
     Dosage: 10MG SIX TIMES PER DAY
     Route: 048
     Dates: start: 20110111
  4. SINEMET [Concomitant]
     Route: 065
     Dates: start: 20110513
  5. MODOPAR [Concomitant]
     Route: 065
  6. SIFROL [Concomitant]
     Route: 065

REACTIONS (12)
  - Malaise [Recovered/Resolved]
  - Loss of consciousness [Recovered/Resolved]
  - Fall [Recovered/Resolved with Sequelae]
  - Dizziness [Recovered/Resolved]
  - Somnolence [Recovered/Resolved]
  - Nausea [Recovered/Resolved]
  - Asthenia [Recovered/Resolved]
  - Injury [Unknown]
  - Face injury [Unknown]
  - Epistaxis [Recovered/Resolved]
  - Ecchymosis [Unknown]
  - Haematoma [Unknown]
